FAERS Safety Report 19920988 (Version 1)
Quarter: 2021Q4

REPORT INFORMATION
  Report Type: Spontaneous
  Country: US (occurrence: US)
  Receive Date: 20211005
  Receipt Date: 20211005
  Transmission Date: 20220303
  Serious: No
  Sender: FDA-Public Use
  Company Number: US-ADAMAS PHARMA, LLC-2021ADA00645

PATIENT
  Age: 75 Year
  Sex: Male

DRUGS (3)
  1. GOCOVRI [Suspect]
     Active Substance: AMANTADINE
     Indication: Dyskinesia
     Dosage: 137 MG, 1X/DAY EVERY NIGHT AT BEDTIME
     Route: 048
     Dates: start: 20210306, end: 20210312
  2. GOCOVRI [Suspect]
     Active Substance: AMANTADINE
     Dosage: 274 MG, 1X/DAY EVERY NIGHT AT BEDTIME
     Route: 048
     Dates: start: 20210313, end: 20210316
  3. LEVODOPA [Concomitant]
     Active Substance: LEVODOPA

REACTIONS (3)
  - Malaise [Unknown]
  - Somnolence [Unknown]
  - Unevaluable event [Unknown]

NARRATIVE: CASE EVENT DATE: 20210301
